FAERS Safety Report 6377612-1 (Version None)
Quarter: 2009Q3

REPORT INFORMATION
  Report Type: 
  Country: None (occurrence: None)
  Receive Date: 20090923
  Receipt Date: 20090923
  Transmission Date: 20100115
  Serious: No
  Sender: FDA-Public Use
  Company Number: None

PATIENT
  Age: 59 Year
  Sex: Female
  Weight: 136 kg

DRUGS (7)
  1. HUMULIN 70/30 [Suspect]
     Indication: TYPE 2 DIABETES MELLITUS
     Dosage: 40 UNITS SQ BID
  2. ASPIRIN [Concomitant]
  3. CARVEDILOL [Concomitant]
  4. FUROSEMIDE [Concomitant]
  5. NORTRIPTYLINE HCL [Concomitant]
  6. SIMVASTATIN [Concomitant]
  7. APAP TAB [Concomitant]

REACTIONS (5)
  - BLOOD GLUCOSE DECREASED [None]
  - DYSPNOEA EXERTIONAL [None]
  - EYE PAIN [None]
  - HEADACHE [None]
  - HYPERHIDROSIS [None]
